FAERS Safety Report 8488788-4 (Version None)
Quarter: 2012Q3

REPORT INFORMATION
  Report Type: 
  Country: None (occurrence: None)
  Receive Date: 20120705
  Receipt Date: 20120705
  Transmission Date: 20120928
  Serious: Yes (Other)
  Sender: FDA-Public Use
  Company Number: US-PFIZER INC-2011US-41316

PATIENT
  Age: 57 Year
  Sex: Female

DRUGS (2)
  1. VERAPAMIL HCL [Suspect]
     Dosage: UNK
     Route: 048
  2. ATENOLOL [Suspect]
     Dosage: UNK
     Route: 048

REACTIONS (4)
  - CARDIOGENIC SHOCK [None]
  - DRUG INTERACTION [None]
  - OVERDOSE [None]
  - ATRIOVENTRICULAR BLOCK COMPLETE [None]
